FAERS Safety Report 18407399 (Version 3)
Quarter: 2020Q4

REPORT INFORMATION
  Report Type: Spontaneous
  Country: DE (occurrence: DE)
  Receive Date: 20201021
  Receipt Date: 20201205
  Transmission Date: 20210114
  Serious: Yes (Other)
  Sender: FDA-Public Use
  Company Number: DE-AUROBINDO-AUR-APL-2020-052706

PATIENT
  Age: 40 Year
  Sex: Female

DRUGS (42)
  1. HALOPERIDOL. [Suspect]
     Active Substance: HALOPERIDOL
     Indication: OPISTHOTONUS
  2. HALOPERIDOL. [Suspect]
     Active Substance: HALOPERIDOL
     Indication: MOVEMENT DISORDER
  3. TETRABENAZINE. [Concomitant]
     Active Substance: TETRABENAZINE
     Indication: CHOREOATHETOSIS
     Dosage: 200 MILLIGRAM, ONCE A DAY
     Route: 048
  4. DUROGESIC SMAT [Suspect]
     Active Substance: FENTANYL
     Indication: OPISTHOTONUS
     Dosage: 100 MICROGRAM, 3 DAY
     Route: 062
  5. SUFENTA [Suspect]
     Active Substance: SUFENTANIL CITRATE
     Indication: MOVEMENT DISORDER
  6. CLONAZEPAM. [Concomitant]
     Active Substance: CLONAZEPAM
     Indication: CHOREOATHETOSIS
     Dosage: 8 MILLIGRAM, ONCE A DAY
     Route: 048
  7. CLONAZEPAM. [Concomitant]
     Active Substance: CLONAZEPAM
     Indication: OPISTHOTONUS
     Dosage: UNK
     Route: 065
  8. TIAPRIDE [Concomitant]
     Active Substance: TIAPRIDE
     Indication: CHOREOATHETOSIS
     Dosage: 100 MILLIGRAM, ONCE A DAY
     Route: 048
  9. TIAPRIDE [Concomitant]
     Active Substance: TIAPRIDE
     Indication: MOVEMENT DISORDER
  10. SUFENTA [Suspect]
     Active Substance: SUFENTANIL CITRATE
     Indication: CHOREOATHETOSIS
     Dosage: UNK
     Route: 065
  11. SUFENTA [Suspect]
     Active Substance: SUFENTANIL CITRATE
     Indication: OPISTHOTONUS
     Dosage: 0.3 UG/KG/H
     Route: 042
  12. CLONIDINE. [Concomitant]
     Active Substance: CLONIDINE
     Indication: CHOREOATHETOSIS
     Dosage: 600 MICROGRAM, ONCE A DAY
     Route: 048
  13. MIDAZOLAM. [Concomitant]
     Active Substance: MIDAZOLAM
     Indication: MOVEMENT DISORDER
  14. OLANZAPINE. [Suspect]
     Active Substance: OLANZAPINE
     Indication: OPISTHOTONUS
     Dosage: 30 MILLIGRAM, ONCE A DAY
     Route: 048
  15. OLANZAPINE. [Suspect]
     Active Substance: OLANZAPINE
     Indication: CHOREOATHETOSIS
     Dosage: UNK
     Route: 065
  16. OLANZAPINE. [Suspect]
     Active Substance: OLANZAPINE
     Indication: MOVEMENT DISORDER
  17. CLONIDINE. [Concomitant]
     Active Substance: CLONIDINE
     Indication: OPISTHOTONUS
     Dosage: UNK
     Route: 065
  18. MIDAZOLAM. [Concomitant]
     Active Substance: MIDAZOLAM
     Indication: OPISTHOTONUS
     Dosage: UNK
     Route: 065
  19. PROPOFOL. [Concomitant]
     Active Substance: PROPOFOL
     Indication: OPISTHOTONUS
     Dosage: UNK
     Route: 065
  20. TIAPRIDE [Concomitant]
     Active Substance: TIAPRIDE
     Indication: OPISTHOTONUS
     Dosage: UNK
     Route: 065
  21. TRIHEXYPHENIDYL [Concomitant]
     Active Substance: TRIHEXYPHENIDYL
     Indication: MOVEMENT DISORDER
  22. DUROGESIC SMAT [Suspect]
     Active Substance: FENTANYL
     Indication: MOVEMENT DISORDER
  23. BACLOFEN. [Concomitant]
     Active Substance: BACLOFEN
     Indication: CHOREOATHETOSIS
     Dosage: 120 MILLIGRAM, ONCE A DAY
     Route: 048
  24. BACLOFEN. [Concomitant]
     Active Substance: BACLOFEN
     Indication: MOVEMENT DISORDER
  25. CLONIDINE. [Concomitant]
     Active Substance: CLONIDINE
     Indication: MOVEMENT DISORDER
  26. LEVOMEPROMAZINE [Concomitant]
     Active Substance: LEVOMEPROMAZINE
     Indication: OPISTHOTONUS
     Dosage: 600 MILLIGRAM, ONCE A DAY
     Route: 048
  27. HALOPERIDOL. [Suspect]
     Active Substance: HALOPERIDOL
     Indication: CHOREOATHETOSIS
     Dosage: 3 MILLIGRAM, ONCE A DAY
     Route: 048
  28. LEVOMEPROMAZINE [Concomitant]
     Active Substance: LEVOMEPROMAZINE
     Indication: CHOREOATHETOSIS
     Dosage: 200 MILLIGRAM, ONCE A DAY
     Route: 042
  29. PROPOFOL. [Concomitant]
     Active Substance: PROPOFOL
     Indication: CHOREOATHETOSIS
     Dosage: 5.45MG/KG/H
     Route: 042
  30. TETRABENAZINE. [Concomitant]
     Active Substance: TETRABENAZINE
     Indication: MOVEMENT DISORDER
  31. BACLOFEN. [Concomitant]
     Active Substance: BACLOFEN
     Indication: OPISTHOTONUS
     Dosage: UNK
     Route: 065
  32. CLONAZEPAM. [Concomitant]
     Active Substance: CLONAZEPAM
     Indication: MOVEMENT DISORDER
  33. DEXMEDETOMIDINE. [Concomitant]
     Active Substance: DEXMEDETOMIDINE
     Indication: CHOREOATHETOSIS
     Dosage: 1.6 UG/KG/H
     Route: 042
  34. MIDAZOLAM. [Concomitant]
     Active Substance: MIDAZOLAM
     Indication: CHOREOATHETOSIS
     Dosage: 0.23 MG/KG/H
     Route: 042
  35. PROPOFOL. [Concomitant]
     Active Substance: PROPOFOL
     Indication: MOVEMENT DISORDER
  36. DUROGESIC SMAT [Suspect]
     Active Substance: FENTANYL
     Indication: CHOREOATHETOSIS
     Dosage: UNK
     Route: 065
  37. DEXMEDETOMIDINE. [Concomitant]
     Active Substance: DEXMEDETOMIDINE
     Indication: OPISTHOTONUS
     Dosage: UNK
     Route: 065
  38. DEXMEDETOMIDINE. [Concomitant]
     Active Substance: DEXMEDETOMIDINE
     Indication: MOVEMENT DISORDER
  39. LEVOMEPROMAZINE [Concomitant]
     Active Substance: LEVOMEPROMAZINE
     Indication: MOVEMENT DISORDER
  40. TETRABENAZINE. [Concomitant]
     Active Substance: TETRABENAZINE
     Indication: OPISTHOTONUS
     Dosage: UNK
     Route: 065
  41. TRIHEXYPHENIDYL [Concomitant]
     Active Substance: TRIHEXYPHENIDYL
     Indication: CHOREOATHETOSIS
     Dosage: 120 MILLIGRAM, ONCE A DAY
     Route: 048
  42. TRIHEXYPHENIDYL [Concomitant]
     Active Substance: TRIHEXYPHENIDYL
     Indication: OPISTHOTONUS
     Dosage: UNK
     Route: 065

REACTIONS (4)
  - Dystonia [Recovered/Resolved]
  - Drug ineffective for unapproved indication [Unknown]
  - Product use in unapproved indication [Unknown]
  - Off label use [Unknown]
